FAERS Safety Report 13879812 (Version 2)
Quarter: 2017Q4

REPORT INFORMATION
  Report Type: Spontaneous
  Country: IT (occurrence: IT)
  Receive Date: 20170818
  Receipt Date: 20171106
  Transmission Date: 20180320
  Serious: Yes (Hospitalization)
  Sender: FDA-Public Use
  Company Number: IT-JNJFOC-20170810151

PATIENT
  Age: 50 Year
  Sex: Male

DRUGS (4)
  1. RISPERDAL [Suspect]
     Active Substance: RISPERIDONE
     Indication: DEPRESSION
     Dosage: STRENGTH: 2 MG
     Route: 048
     Dates: start: 20090101, end: 20170630
  2. ASACOL [Concomitant]
     Active Substance: MESALAMINE
     Dosage: 800 MG GASTRO-RESISTANT TABLETS
     Route: 048
  3. RISPERDAL [Suspect]
     Active Substance: RISPERIDONE
     Indication: DEPRESSION
     Dosage: STRENGTH: 25 MG/2 ML
     Route: 030
     Dates: start: 20170629, end: 20170630
  4. EN [Suspect]
     Active Substance: DELORAZEPAM
     Indication: DEPRESSION
     Dosage: STRENGTH: 1 MG
     Route: 048
     Dates: start: 20090101, end: 20170630

REACTIONS (6)
  - Unresponsive to stimuli [Recovering/Resolving]
  - Catatonia [Recovering/Resolving]
  - Depressed level of consciousness [Recovering/Resolving]
  - Off label use [Unknown]
  - Product use in unapproved indication [Unknown]
  - Inappropriate schedule of drug administration [Unknown]

NARRATIVE: CASE EVENT DATE: 20170630
